FAERS Safety Report 12975830 (Version 2)
Quarter: 2020Q2

REPORT INFORMATION
  Report Type: Report from Study
  Country: NL (occurrence: NL)
  Receive Date: 20161125
  Receipt Date: 20200420
  Transmission Date: 20200713
  Serious: Yes (Hospitalization)
  Sender: FDA-Public Use
  Company Number: PHHO2016NL016587

PATIENT
  Age: 35 Year
  Sex: Male
  Weight: 72.6 kg

DRUGS (5)
  1. NIFEDIPINE. [Concomitant]
     Active Substance: NIFEDIPINE
     Indication: HYPERTENSION
     Dosage: 90
     Route: 065
     Dates: start: 20161007
  2. CALCIUM CARBONATE. [Concomitant]
     Active Substance: CALCIUM CARBONATE
     Indication: OSTEOPOROSIS
     Dosage: 90
     Route: 065
     Dates: start: 20151105
  3. LCI699 [Suspect]
     Active Substance: OSILODROSTAT
     Indication: PITUITARY-DEPENDENT CUSHING^S SYNDROME
     Dosage: 2 MG, BID
     Route: 065
     Dates: start: 20150909
  4. NO TREATMENT RECEIVED [Suspect]
     Active Substance: UNSPECIFIED INGREDIENT
     Indication: PITUITARY-DEPENDENT CUSHING^S SYNDROME
     Dosage: NO TREATMENT
     Route: 065
  5. ZOMETA [Suspect]
     Active Substance: ZOLEDRONIC ACID
     Indication: OSTEOPOROSIS
     Dosage: 40 MG, ONCE A YEAR
     Route: 042
     Dates: start: 20151104

REACTIONS (1)
  - Gastroenteritis [Recovered/Resolved]

NARRATIVE: CASE EVENT DATE: 20161103
